FAERS Safety Report 5671161-1 (Version None)
Quarter: 2008Q1

REPORT INFORMATION
  Report Type: 
  Country: None (occurrence: None)
  Receive Date: 20080318
  Receipt Date: 20080307
  Transmission Date: 20080703
  Serious: Yes (Death, Hospitalization)
  Sender: FDA-Public Use
  Company Number: DK-ELI_LILLY_AND_COMPANY-DK200709002776

PATIENT
  Sex: Male
  Weight: 100 kg

DRUGS (23)
  1. CYMBALTA [Suspect]
     Indication: DEPRESSION
     Dosage: 30 MG, DAILY (1/D)
     Route: 048
     Dates: start: 20070403, end: 20070520
  2. CITALOPRAM HYDROBROMIDE [Concomitant]
     Dosage: 20 MG, DAILY (1/D)
     Route: 048
     Dates: end: 20070226
  3. CITALOPRAM HYDROBROMIDE [Concomitant]
     Dosage: 40 MG, DAILY (1/D)
     Route: 048
     Dates: start: 20070227
  4. CITALOPRAM HYDROBROMIDE [Concomitant]
     Dosage: 60 MG, DAILY (1/D)
     Route: 048
  5. SODIUM BICARBONATE [Concomitant]
     Dosage: 500 MG, 3/D
     Route: 048
  6. ETALPHA                            /00454801/ [Concomitant]
     Dosage: 2 D/F, 2/W
  7. ETALPHA                            /00454801/ [Concomitant]
     Dosage: UNK, EVERY SEVENTH DAY
     Route: 048
  8. LACTULOSE [Concomitant]
     Dosage: 15 ML, UNKNOWN
     Route: 065
  9. MAGNYL [Concomitant]
     Dosage: 100 MG, ONE EVERY SECOND DAY
     Route: 048
  10. AMLODIPIN                          /00972401/ [Concomitant]
     Dosage: 20 MG, DAILY (1/D)
     Route: 065
  11. DETRUSITOL RETARD [Concomitant]
     Dosage: 2.8 MG, DAILY (1/D)
     Route: 048
  12. NIFEREX [Concomitant]
     Dosage: 10 MG, DAILY (1/D)
  13. NIFEREX [Concomitant]
     Dosage: 100 MG, DAILY (1/D)
     Route: 048
  14. SELO-ZOK [Concomitant]
     Dosage: 100 MG, DAILY (1/D)
     Route: 048
  15. SIMVACOR [Concomitant]
     Dosage: 40 MG, DAILY (1/D)
     Route: 048
  16. TRIMETOPRIM [Concomitant]
     Dosage: 100 MG, DAILY (1/D)
     Route: 048
  17. CIPRAMIL [Concomitant]
     Dosage: 10 MG, AS NEEDED
     Route: 065
  18. IMOCLONE [Concomitant]
     Dosage: 7.5 MG, UNKNOWN
  19. IMOCLONE [Concomitant]
     Dosage: 0.5 D/F, EACH EVENING
     Route: 065
  20. C-VITAMIN [Concomitant]
     Dosage: 0.5 D/F, UNKNOWN
  21. FURESE [Concomitant]
     Dosage: 40 MG, UNKNOWN
  22. METOPROLOL TARTRATE [Concomitant]
     Dosage: 100 MG, DAILY (1/D)
  23. NORVASC [Concomitant]
     Dosage: 10 MG, UNKNOWN

REACTIONS (2)
  - STEVENS-JOHNSON SYNDROME [None]
  - URINARY TRACT INFECTION [None]
